FAERS Safety Report 8330367-3 (Version None)
Quarter: 2012Q2

REPORT INFORMATION
  Report Type: 
  Country: None (occurrence: None)
  Receive Date: 20120502
  Receipt Date: 20120419
  Transmission Date: 20120825
  Serious: Yes (Other)
  Sender: FDA-Public Use
  Company Number: IT-MYLANLABS-2012S1008321

PATIENT
  Age: 54 Year
  Sex: Female

DRUGS (5)
  1. PACLITAXEL [Suspect]
     Indication: CERVIX CARCINOMA STAGE IV
     Route: 042
     Dates: start: 20120227, end: 20120312
  2. RANIDIL [Concomitant]
     Indication: PRODUCT USED FOR UNKNOWN INDICATION
  3. ONDANSETRON [Concomitant]
     Indication: PRODUCT USED FOR UNKNOWN INDICATION
  4. CHLORPHENIRAMINE MALEATE [Concomitant]
     Indication: PRODUCT USED FOR UNKNOWN INDICATION
  5. SOLU-CORTEF [Concomitant]
     Indication: PRODUCT USED FOR UNKNOWN INDICATION

REACTIONS (4)
  - BACK PAIN [None]
  - FEELING HOT [None]
  - BLOOD PRESSURE INCREASED [None]
  - DYSPNOEA [None]
